FAERS Safety Report 8416840-8 (Version None)
Quarter: 2012Q2

REPORT INFORMATION
  Report Type: 
  Country: None (occurrence: None)
  Receive Date: 20120606
  Receipt Date: 20120525
  Transmission Date: 20120825
  Serious: No
  Sender: FDA-Public Use
  Company Number: US-ENDO PHARMACEUTICALS INC.-PERC20120105

PATIENT
  Sex: Female
  Weight: 75.364 kg

DRUGS (1)
  1. PERCOCET [Suspect]
     Indication: BACK PAIN
     Dosage: 60/3900 MG
     Route: 048
     Dates: start: 19970101

REACTIONS (2)
  - DRUG INEFFECTIVE [None]
  - WEIGHT INCREASED [None]
